FAERS Safety Report 5824396-9 (Version None)
Quarter: 2008Q3

REPORT INFORMATION
  Report Type: 
  Country: None (occurrence: None)
  Receive Date: 20080728
  Receipt Date: 20080718
  Transmission Date: 20090109
  Serious: Yes (Disabling)
  Sender: FDA-Public Use
  Company Number: A0733723A

PATIENT
  Age: 61 Year
  Sex: Male

DRUGS (2)
  1. IMITREX [Suspect]
     Indication: HEADACHE
     Route: 058
  2. CONCURRENT MEDICATIONS [Concomitant]

REACTIONS (3)
  - HEADACHE [None]
  - HYPOAESTHESIA [None]
  - INJECTION SITE ANAESTHESIA [None]
